FAERS Safety Report 8694862 (Version 5)
Quarter: 2012Q4

REPORT INFORMATION
  Report Type: Report from Study
  Country: BR (occurrence: BR)
  Receive Date: 20120731
  Receipt Date: 20121025
  Transmission Date: 20130627
  Serious: Yes (Death, Hospitalization)
  Sender: FDA-Public Use
  Company Number: BR-BRISTOL-MYERS SQUIBB COMPANY-16789547

PATIENT
  Age: 62 Year
  Sex: Male
  Weight: 60 kg

DRUGS (12)
  1. CISPLATIN [Suspect]
     Indication: NON-SMALL CELL LUNG CANCER
     Dosage: Last dose:03Jul2012
     Route: 042
     Dates: start: 20120503
  2. PEMETREXED DISODIUM [Suspect]
     Indication: NON-SMALL CELL LUNG CANCER
     Route: 042
     Dates: start: 20120503
  3. FOLIC ACID [Concomitant]
     Dates: start: 20120426, end: 20120712
  4. VITAMIN B12 [Concomitant]
     Dates: start: 20120426, end: 20120703
  5. DEXAMETHASONE [Concomitant]
     Dates: start: 20120702, end: 20120704
  6. PARACETAMOL [Concomitant]
     Dates: start: 20120503, end: 20120712
  7. AMIODARONE [Concomitant]
     Dates: start: 201201, end: 20120712
  8. OMEPRAZOLE [Concomitant]
     Dates: start: 201202, end: 20120712
  9. LACTULOSE [Concomitant]
     Dates: start: 20120525, end: 20120712
  10. PREDNISONE [Concomitant]
     Dates: start: 20120207, end: 20120618
  11. BEROTEC [Concomitant]
     Dates: start: 20120704, end: 20120712
  12. ATROVENT [Concomitant]
     Dates: start: 20120704, end: 20120712

REACTIONS (3)
  - Acute respiratory failure [Fatal]
  - Shock [Fatal]
  - Febrile neutropenia [Unknown]
